FAERS Safety Report 10195753 (Version 1)
Quarter: 2014Q2

REPORT INFORMATION
  Report Type: Spontaneous
  Country: US (occurrence: None)
  Receive Date: 20140522
  Receipt Date: 20140522
  Transmission Date: 20141212
  Serious: Yes (Hospitalization)
  Sender: FDA-Public Use
  Company Number: None

PATIENT
  Age: 49 Year
  Sex: Male
  Weight: 72 kg

DRUGS (7)
  1. PAZOPANIB [Suspect]
     Indication: ANGIOSARCOMA
     Route: 048
     Dates: start: 20140204, end: 20140423
  2. BENICAR [Concomitant]
  3. METOPROLOL [Concomitant]
  4. MORPHINE SULFATE ER [Concomitant]
  5. HYDROCODONE [Concomitant]
  6. ZOFRAN [Concomitant]
  7. COMPAZINE [Concomitant]

REACTIONS (3)
  - Pulmonary mass [None]
  - Pleural effusion [None]
  - Pericardial effusion [None]
